FAERS Safety Report 25692104 (Version 1)
Quarter: 2025Q3

REPORT INFORMATION
  Report Type: Spontaneous
  Country: US (occurrence: US)
  Receive Date: 20250818
  Receipt Date: 20250818
  Transmission Date: 20251020
  Serious: Yes (Life-Threatening)
  Sender: SUN BUM
  Company Number: US-SUNBUM-2025-US-037143

PATIENT
  Age: 21 Year
  Sex: Female
  Weight: 55.34 kg

DRUGS (3)
  1. AVOBENZONE, HOMOSALATE, OCTISALATE, OCTOCRYLENE [Suspect]
     Active Substance: AVOBENZONE\HOMOSALATE\OCTISALATE\OCTOCRYLENE
     Indication: Product used for unknown indication
     Route: 061
     Dates: start: 20250805, end: 20250805
  2. DAYVIGO [Concomitant]
     Active Substance: LEMBOREXANT
  3. VITAMIN D [Concomitant]
     Active Substance: VITAMIN D NOS

REACTIONS (8)
  - Rash [Recovered/Resolved]
  - Pruritus [Recovered/Resolved]
  - Dyspnoea [Unknown]
  - Dizziness [Recovered/Resolved]
  - Dizziness [Recovered/Resolved]
  - Pharyngeal swelling [Unknown]
  - Anaphylactic reaction [Unknown]
  - Erythema [Recovered/Resolved]

NARRATIVE: CASE EVENT DATE: 20250805
